FAERS Safety Report 6819973-2 (Version None)
Quarter: 2010Q3

REPORT INFORMATION
  Report Type: 
  Country: None (occurrence: None)
  Receive Date: 20100707
  Receipt Date: 20100629
  Transmission Date: 20110219
  Serious: Yes (Other)
  Sender: FDA-Public Use
  Company Number: BR-ROCHE-650335

PATIENT
  Sex: Female
  Weight: 49 kg

DRUGS (4)
  1. ROACUTAN [Suspect]
     Indication: ACNE
     Route: 048
     Dates: start: 20080701, end: 20081201
  2. ROACUTAN [Suspect]
     Dosage: STRENGTH: 10 - 20 MG/CAP
     Route: 048
     Dates: start: 20090401
  3. CIMEGRIPE [Concomitant]
     Dosage: DRUG REPORTEDAS CENEGRIPE
     Route: 048
     Dates: start: 20090803, end: 20090809
  4. CONTRACEPTIVE [Concomitant]
     Indication: CONTRACEPTION

REACTIONS (1)
  - ABORTION SPONTANEOUS [None]
